FAERS Safety Report 7746419-2 (Version None)
Quarter: 2011Q3

REPORT INFORMATION
  Report Type: 
  Country: None (occurrence: None)
  Receive Date: 20110913
  Receipt Date: 20110913
  Transmission Date: 20111222
  Serious: Yes (Other)
  Sender: FDA-Public Use
  Company Number: None

PATIENT
  Sex: Male
  Weight: 70.76 kg

DRUGS (2)
  1. IBUPROFEN [Suspect]
     Indication: PYREXIA
     Dosage: 400
     Route: 048
     Dates: start: 20110908, end: 20110913
  2. IBUPROFEN [Suspect]
     Indication: NECK PAIN
     Dosage: 400
     Route: 048
     Dates: start: 20110908, end: 20110913

REACTIONS (3)
  - BURNING SENSATION [None]
  - FEELING ABNORMAL [None]
  - PRURITUS [None]
